FAERS Safety Report 12559926 (Version 1)
Quarter: 2016Q3

REPORT INFORMATION
  Report Type: Spontaneous
  Country: US (occurrence: US)
  Receive Date: 20160715
  Receipt Date: 20160715
  Transmission Date: 20161109
  Serious: No
  Sender: FDA-Public Use
  Company Number: US-JNJFOC-20160500948

PATIENT
  Age: 64 Year
  Sex: Male
  Weight: 74.84 kg

DRUGS (12)
  1. COLLAGEN [Concomitant]
     Active Substance: COLLAGEN
     Indication: ELDERLY
     Dosage: 1 PILL/ DAILY
     Route: 065
  2. EVENING PRIMROSE OIL [Concomitant]
     Active Substance: EVENING PRIMROSE OIL
     Indication: ELDERLY
     Dosage: 1 CAPSUL/ DAILY
     Route: 065
  3. MULTIVITAMINS [Concomitant]
     Active Substance: VITAMINS
     Indication: ROUTINE HEALTH MAINTENANCE
     Dosage: 1 PILL/ DAILY
     Route: 065
  4. HYALURONIC ACID [Concomitant]
     Active Substance: HYALURONIC ACID
     Indication: ELDERLY
     Dosage: 1 PILL/ DAILY
     Route: 065
  5. MENS ROGAINE EXTRA STRENGTH [Suspect]
     Active Substance: MINOXIDIL
     Route: 061
  6. FISH OIL [Concomitant]
     Active Substance: FISH OIL
     Indication: ROUTINE HEALTH MAINTENANCE
     Dosage: 1 PILL/ DAILY
     Route: 065
  7. PROPECIA [Concomitant]
     Active Substance: FINASTERIDE
     Indication: ALOPECIA
     Dosage: 1 PILL/ DAILY
     Route: 065
  8. UBIQUINOL [Concomitant]
     Active Substance: UBIQUINOL
     Indication: ELDERLY
     Route: 065
  9. MENS ROGAINE EXTRA STRENGTH [Suspect]
     Active Substance: MINOXIDIL
     Indication: ALOPECIA
     Route: 061
  10. SPIRULINA SPP. [Concomitant]
     Indication: NUTRITIONAL SUPPLEMENTATION
     Route: 065
  11. ALPHA LIPOIC ACID [Concomitant]
     Active Substance: .ALPHA.-LIPOIC ACID
     Indication: METABOLIC DISORDER
     Route: 065
  12. RISPERIDONE. [Concomitant]
     Active Substance: RISPERIDONE
     Indication: PRODUCT USED FOR UNKNOWN INDICATION
     Route: 065

REACTIONS (2)
  - Therapeutic response decreased [Unknown]
  - Alopecia [Not Recovered/Not Resolved]
